FAERS Safety Report 13418532 (Version 4)
Quarter: 2018Q4

REPORT INFORMATION
  Report Type: Spontaneous
  Country: JP (occurrence: JP)
  Receive Date: 20170406
  Receipt Date: 20181116
  Transmission Date: 20190204
  Serious: Yes (Life-Threatening, Hospitalization, Other)
  Sender: FDA-Public Use
  Company Number: JP-009507513-1704JPN001472

PATIENT
  Age: 67 Year
  Sex: Female

DRUGS (5)
  1. PACLITAXEL. [Suspect]
     Active Substance: PACLITAXEL
     Indication: NON-SMALL CELL LUNG CANCER STAGE III
     Dosage: 40 MG/M2, WEEKLY
  2. INSULIN [Concomitant]
     Active Substance: INSULIN NOS
     Dosage: SLIDING-SCALE THERAPY
  3. DEXAMETHASONE. [Suspect]
     Active Substance: DEXAMETHASONE
     Dosage: 10 MG ON DAY 1; IV NOS
     Route: 042
  4. CARBOPLATIN. [Suspect]
     Active Substance: CARBOPLATIN
     Indication: NON-SMALL CELL LUNG CANCER STAGE III
     Dosage: AREA UNDER THE CURVE: 2
  5. DEXAMETHASONE. [Suspect]
     Active Substance: DEXAMETHASONE
     Indication: PROPHYLAXIS OF NAUSEA AND VOMITING
     Dosage: 8 MG/DAY (ORALLY) ON DAYS 2 AND 3
     Route: 048

REACTIONS (7)
  - Pneumonia klebsiella [Recovered/Resolved]
  - Emphysematous cystitis [Recovered/Resolved]
  - Hyperglycaemia [Unknown]
  - Urinary tract obstruction [Recovered/Resolved]
  - Emphysematous pyelonephritis [Recovered/Resolved]
  - Urinary tract infection [Recovered/Resolved]
  - Bone marrow failure [Unknown]
